FAERS Safety Report 9706947 (Version 1)
Quarter: 2013Q4

REPORT INFORMATION
  Report Type: Spontaneous
  Country: US (occurrence: US)
  Receive Date: 20131125
  Receipt Date: 20131125
  Transmission Date: 20140711
  Serious: No
  Sender: FDA-Public Use
  Company Number: US-PFIZER INC-2013334477

PATIENT
  Age: 49 Year
  Sex: Female
  Weight: 58.96 kg

DRUGS (3)
  1. NEURONTIN [Suspect]
     Indication: RHEUMATOID ARTHRITIS
     Dosage: 1200 MG (2 X 600MG), 3X/DAY
  2. NEURONTIN [Suspect]
     Indication: NEUROPATHY PERIPHERAL
  3. METHADONE [Suspect]
     Dosage: UNK

REACTIONS (2)
  - Off label use [Unknown]
  - Malaise [Recovered/Resolved]
